FAERS Safety Report 7703494-9 (Version None)
Quarter: 2011Q3

REPORT INFORMATION
  Report Type: 
  Country: None (occurrence: None)
  Receive Date: 20110817
  Receipt Date: 20110809
  Transmission Date: 20111222
  Serious: Yes (Hospitalization)
  Sender: FDA-Public Use
  Company Number: 2010SP052257

PATIENT
  Age: 47 Year
  Sex: Female
  Weight: 63 kg

DRUGS (21)
  1. DEXAMETHASONE [Concomitant]
  2. ONDANSETRON [Concomitant]
  3. OMEPRAZOLE [Concomitant]
  4. MAGNESIUM SULFATE [Concomitant]
  5. ACETAMINOPHEN [Concomitant]
  6. ONDANSETRON [Concomitant]
  7. GAVISCON [Concomitant]
  8. CYCLIZINE [Concomitant]
  9. POLYETHYL.GLYC. [Concomitant]
  10. AMITRIPTYLINE HCL [Concomitant]
  11. OMEPRAZOLE [Concomitant]
  12. GLUCEROL [Concomitant]
  13. TEMOZOLOMIDE [Suspect]
     Indication: OVARIAN CANCER
     Dosage: PO
     Route: 048
     Dates: start: 20100810, end: 20100912
  14. SENNA ALEXANDRINA [Concomitant]
  15. HYOSCINE HBR HYT [Concomitant]
  16. CYCLIZINE [Concomitant]
  17. ZOPICLONE [Concomitant]
  18. ENEMA [Concomitant]
  19. ABT-888 (INVESTIGATIONAL DRUG) [Suspect]
     Indication: OVARIAN CANCER
     Dosage: 40 MG, BID, PO
     Route: 048
     Dates: start: 20100810, end: 20100912
  20. DOMPERIDONE [Concomitant]
  21. IBUPROFEN [Concomitant]

REACTIONS (13)
  - VOMITING [None]
  - NEUTROPHIL COUNT DECREASED [None]
  - NAUSEA [None]
  - PALPITATIONS [None]
  - PELVIC PAIN [None]
  - CONSTIPATION [None]
  - FATIGUE [None]
  - DYSPNOEA [None]
  - WHITE BLOOD CELL COUNT DECREASED [None]
  - HYPOKALAEMIA [None]
  - DECREASED APPETITE [None]
  - ABDOMINAL PAIN [None]
  - HYPONATRAEMIA [None]
